FAERS Safety Report 15222720 (Version 2)
Quarter: 2018Q4

REPORT INFORMATION
  Report Type: Spontaneous
  Country: MA (occurrence: MA)
  Receive Date: 20180731
  Receipt Date: 20181025
  Transmission Date: 20190204
  Serious: Yes (Other)
  Sender: FDA-Public Use
  Company Number: MA-SHIRE-MA201829058

PATIENT

DRUGS (1)
  1. COAGULATION FACTOR VIII(RECOMBINANT) [Suspect]
     Active Substance: ANTIHEMOPHILIC FACTOR, HUMAN RECOMBINANT
     Indication: FACTOR VIII DEFICIENCY
     Dosage: UNK
     Route: 065

REACTIONS (1)
  - Factor VIII inhibition [Unknown]
